FAERS Safety Report 25779604 (Version 1)
Quarter: 2025Q3

REPORT INFORMATION
  Report Type: Spontaneous
  Country: EU (occurrence: EU)
  Receive Date: 20250909
  Receipt Date: 20250909
  Transmission Date: 20251021
  Serious: Yes (Hospitalization)
  Sender: BOEHRINGER INGELHEIM
  Company Number: None

PATIENT
  Age: 0 Hour
  Sex: Male
  Weight: 3.81 kg

DRUGS (2)
  1. VIRAMUNE [Suspect]
     Active Substance: NEVIRAPINE
     Indication: Prophylaxis against HIV infection
     Dates: start: 20250823
  2. VIRAMUNE [Suspect]
     Active Substance: NEVIRAPINE
     Dates: start: 20250824

REACTIONS (3)
  - Incorrect dose administered [Not Recovered/Not Resolved]
  - Jaundice cholestatic [Not Recovered/Not Resolved]
  - Blood bilirubin increased [Not Recovered/Not Resolved]

NARRATIVE: CASE EVENT DATE: 20250823
